FAERS Safety Report 7042860-4 (Version None)
Quarter: 2010Q4

REPORT INFORMATION
  Report Type: 
  Country: None (occurrence: None)
  Receive Date: 20101013
  Receipt Date: 20091112
  Transmission Date: 20110411
  Serious: No
  Sender: FDA-Public Use
  Company Number: US-ASTRAZENECA-2009SE26201

PATIENT
  Age: 87 Year
  Sex: Female
  Weight: 54.4 kg

DRUGS (4)
  1. SYMBICORT [Suspect]
     Dosage: 160/4.5 TWO PUFFS BID
     Route: 055
     Dates: start: 20070101
  2. ACTONEL [Concomitant]
  3. ATENOLOL [Concomitant]
  4. FUROSEMIDE WATER PILL [Concomitant]
     Indication: HYPERTENSION

REACTIONS (3)
  - GINGIVAL DISCOLOURATION [None]
  - GINGIVAL PAIN [None]
  - TONGUE DISCOLOURATION [None]
